FAERS Safety Report 4785984-4 (Version None)
Quarter: 2005Q3

REPORT INFORMATION
  Report Type: 
  Country: None (occurrence: None)
  Receive Date: 20050930
  Receipt Date: 20050927
  Transmission Date: 20060218
  Serious: Yes (Hospitalization)
  Sender: FDA-Public Use
  Company Number: 200512722GDS

PATIENT
  Age: 81 Year
  Sex: Female

DRUGS (5)
  1. CARDIOASPIRIN (ACETYLSALICYLIC ACID) [Suspect]
     Dosage: 100 MG, TOTAL DAILY, ORAL
     Route: 048
     Dates: start: 20050304, end: 20050617
  2. REMINYL (GALANTAMINE) (GALANTAMINE) [Suspect]
     Indication: DEMENTIA ALZHEIMER'S TYPE
     Dosage: 14 MG, TOTAL DAILY, ORAL
     Route: 048
     Dates: start: 20050304, end: 20050602
  3. GLIBOMET (GALENIC /GLIBENCLAMIDE/METFORMIN/ [Suspect]
     Indication: DIABETES MELLITUS
     Dosage: ORAL
     Route: 048
     Dates: start: 20050304, end: 20050617
  4. ENTACT (ESCITALOPRAM) [Concomitant]
  5. MINIAS [Concomitant]

REACTIONS (14)
  - ANXIETY [None]
  - APNOEA [None]
  - ASTHENIA [None]
  - BLOOD CHOLESTEROL INCREASED [None]
  - BLOOD GLUCOSE INCREASED [None]
  - COORDINATION ABNORMAL [None]
  - DEPRESSION [None]
  - DIFFICULTY IN WALKING [None]
  - DYSPNOEA [None]
  - FALL [None]
  - HEART RATE INCREASED [None]
  - MONARTHRITIS [None]
  - STATUS EPILEPTICUS [None]
  - WHEEZING [None]
